FAERS Safety Report 9610766 (Version 1)
Quarter: 2013Q4

REPORT INFORMATION
  Report Type: Spontaneous
  Country: US (occurrence: US)
  Receive Date: 20131009
  Receipt Date: 20131009
  Transmission Date: 20140711
  Serious: No
  Sender: FDA-Public Use
  Company Number: US-PFIZER INC-2013285796

PATIENT
  Age: 55 Year
  Sex: Female
  Weight: 56.7 kg

DRUGS (3)
  1. RELPAX [Suspect]
     Indication: MIGRAINE
     Dosage: UNK, AS NEEDED
     Route: 048
     Dates: start: 20130912, end: 201309
  2. VERAPAMIL [Concomitant]
     Dosage: UNK
  3. EFFEXOR-XR [Concomitant]
     Dosage: UNK, 1X/DAY

REACTIONS (1)
  - Drug ineffective [Unknown]
